FAERS Safety Report 6959538-5 (Version None)
Quarter: 2010Q3

REPORT INFORMATION
  Report Type: 
  Country: None (occurrence: None)
  Receive Date: 20100827
  Receipt Date: 20100818
  Transmission Date: 20110219
  Serious: Yes (Hospitalization)
  Sender: FDA-Public Use
  Company Number: 2010MA001866

PATIENT
  Age: 34 Year
  Sex: Male

DRUGS (9)
  1. RISPERIDONE [Suspect]
     Indication: SCHIZOPHRENIA
  2. CHLORPROMAZINE [Suspect]
  3. ZUCLOPENTHIXOL (ZUCLOPENTHIXOL) [Suspect]
  4. LEVOPROME [Suspect]
  5. OLANZAPINE [Suspect]
     Dosage: 25 MG
  6. QUETIAPINE [Suspect]
  7. DIAZEPAM [Concomitant]
  8. CLOZAPINE [Concomitant]
  9. PREV MEDS [Concomitant]

REACTIONS (5)
  - ANXIETY [None]
  - DYSKINESIA [None]
  - PERSECUTORY DELUSION [None]
  - THERAPEUTIC PRODUCT INEFFECTIVE [None]
  - TORTICOLLIS [None]
